FAERS Safety Report 13425129 (Version 1)
Quarter: 2017Q2

REPORT INFORMATION
  Report Type: Spontaneous
  Country: US (occurrence: US)
  Receive Date: 20170411
  Receipt Date: 20170411
  Transmission Date: 20170830
  Serious: No
  Sender: FDA-Public Use
  Company Number: US-BAUSCH-BL-2016-017597

PATIENT
  Age: 61 Year
  Sex: Female

DRUGS (1)
  1. POLYMYXIN B SULFATE AND TRIMETHOPRIM [Suspect]
     Active Substance: POLYMYXIN B SULFATE\TRIMETHOPRIM SULFATE
     Indication: EYE INFECTION
     Route: 047
     Dates: start: 20160720, end: 20160720

REACTIONS (2)
  - No adverse event [Unknown]
  - Expired product administered [Recovered/Resolved]

NARRATIVE: CASE EVENT DATE: 20160720
